FAERS Safety Report 15652756 (Version 1)
Quarter: 2018Q4

REPORT INFORMATION
  Report Type: Spontaneous
  Country: US (occurrence: US)
  Receive Date: 20181123
  Receipt Date: 20181123
  Transmission Date: 20190205
  Serious: No
  Sender: FDA-Public Use
  Company Number: US-NOVOPROD-585741

PATIENT
  Age: 59 Year
  Sex: Female

DRUGS (13)
  1. NOVOLOG [Suspect]
     Active Substance: INSULIN ASPART
     Dosage: BASAL RATE + MEALTIME BOLUS
     Route: 058
     Dates: start: 2004
  2. NOVOLOG [Suspect]
     Active Substance: INSULIN ASPART
     Dosage: BASAL RATE + MEALTIME BOLUS
     Route: 058
     Dates: start: 2004
  3. NOVOLOG [Suspect]
     Active Substance: INSULIN ASPART
     Dosage: BASAL RATE + MEALTIME BOLUS
     Route: 058
     Dates: start: 2004
  4. NOVOLOG [Suspect]
     Active Substance: INSULIN ASPART
     Dosage: BASAL RATE + MEALTIME BOLUS
     Route: 058
     Dates: start: 2004
  5. NOVOLOG [Suspect]
     Active Substance: INSULIN ASPART
     Dosage: BASAL RATE + MEALTIME BOLUS
     Route: 058
     Dates: start: 2004
  6. NOVOLOG [Suspect]
     Active Substance: INSULIN ASPART
     Dosage: BASAL RATE + MEALTIME BOLUS
     Route: 058
     Dates: start: 2004
  7. NOVOLOG [Suspect]
     Active Substance: INSULIN ASPART
     Indication: TYPE 1 DIABETES MELLITUS
     Dosage: BASAL RATE + MEALTIME BOLUS
     Route: 058
     Dates: start: 2004
  8. NOVOLOG [Suspect]
     Active Substance: INSULIN ASPART
     Dosage: BASAL RATE + MEALTIME BOLUS
     Route: 058
     Dates: start: 2004
  9. NOVOLOG [Suspect]
     Active Substance: INSULIN ASPART
     Dosage: BASAL RATE + MEALTIME BOLUS
     Route: 058
     Dates: start: 2004
  10. NOVOLOG [Suspect]
     Active Substance: INSULIN ASPART
     Dosage: BASAL RATE + MEALTIME BOLUS
     Route: 058
     Dates: start: 2004
  11. NOVOLOG [Suspect]
     Active Substance: INSULIN ASPART
     Dosage: BASAL RATE + MEALTIME BOLUS
     Route: 058
     Dates: start: 2004
  12. NOVOLOG [Suspect]
     Active Substance: INSULIN ASPART
     Dosage: BASAL RATE + MEALTIME BOLUS
     Route: 058
     Dates: start: 2004
  13. NOVOLOG [Suspect]
     Active Substance: INSULIN ASPART
     Dosage: BASAL RATE + MEALTIME BOLUS
     Route: 058
     Dates: start: 2004

REACTIONS (10)
  - Stress [Recovered/Resolved]
  - Blood ketone body [Recovered/Resolved]
  - Stress [Recovered/Resolved]
  - Blood glucose increased [Recovered/Resolved]
  - Liquid product physical issue [Recovered/Resolved]
  - Blood glucose increased [Recovered/Resolved]
  - Blood ketone body [Recovered/Resolved]
  - Drug ineffective [Recovered/Resolved]
  - Liquid product physical issue [Recovered/Resolved]
  - Drug ineffective [Recovered/Resolved]

NARRATIVE: CASE EVENT DATE: 20180205
